FAERS Safety Report 11594552 (Version 2)
Quarter: 2015Q4

REPORT INFORMATION
  Report Type: Spontaneous
  Country: NL (occurrence: NL)
  Receive Date: 20151005
  Receipt Date: 20151006
  Transmission Date: 20160304
  Serious: Yes (Hospitalization, Other)
  Sender: FDA-Public Use
  Company Number: NL-JNJFOC-20150910328

PATIENT
  Sex: Female
  Weight: 70 kg

DRUGS (2)
  1. TOPAMAX [Suspect]
     Active Substance: TOPIRAMATE
     Indication: MIGRAINE PROPHYLAXIS
     Dosage: 2 TIMES A DAY 1 TABLET OF 25 MG
     Route: 048
     Dates: start: 20150902
  2. TOPAMAX [Suspect]
     Active Substance: TOPIRAMATE
     Indication: MIGRAINE PROPHYLAXIS
     Dosage: 2 TIMES A DAY 2 TABLETS OF 25 MG
     Route: 048

REACTIONS (4)
  - Anterior chamber cell [Recovered/Resolved]
  - Conjunctival oedema [Recovered/Resolved]
  - Corneal oedema [Recovered/Resolved]
  - Corneal disorder [Recovered/Resolved]
